FAERS Safety Report 5396629-7 (Version None)
Quarter: 2007Q3

REPORT INFORMATION
  Report Type: 
  Country: None (occurrence: None)
  Receive Date: 20070725
  Receipt Date: 20070718
  Transmission Date: 20080115
  Serious: Yes (Disabling)
  Sender: FDA-Public Use
  Company Number: A0640988A

PATIENT
  Age: 76 Year
  Sex: Male
  Weight: 82.7 kg

DRUGS (1)
  1. REQUIP [Suspect]
     Indication: PARKINSON'S DISEASE
     Dosage: 4MG FOUR TIMES PER DAY
     Route: 048
     Dates: start: 20000101, end: 20070101

REACTIONS (4)
  - INAPPROPRIATE SCHEDULE OF DRUG ADMINISTRATION [None]
  - PARKINSONISM [None]
  - PULMONARY FIBROSIS [None]
  - RESPIRATORY DISORDER [None]
